FAERS Safety Report 10307407 (Version 1)
Quarter: 2014Q3

REPORT INFORMATION
  Report Type: Spontaneous
  Country: US (occurrence: None)
  Receive Date: 20140714
  Receipt Date: 20140714
  Transmission Date: 20150326
  Serious: Yes (Disabling)
  Sender: FDA-Public Use
  Company Number: None

PATIENT
  Age: 56 Year
  Sex: Female
  Weight: 90.72 kg

DRUGS (1)
  1. ORENCIA [Suspect]
     Active Substance: ABATACEPT
     Indication: RHEUMATOID ARTHRITIS
     Dosage: 1?WEEKLY?GIVEN INTO/UNDER THE SKIN

REACTIONS (4)
  - Pulmonary mass [None]
  - Drug ineffective [None]
  - Cough [None]
  - Computerised tomogram thorax abnormal [None]
